FAERS Safety Report 10053077 (Version 5)
Quarter: 2015Q2

REPORT INFORMATION
  Report Type: Report from Study
  Country: JP (occurrence: JP)
  Receive Date: 20140402
  Receipt Date: 20150608
  Transmission Date: 20150821
  Serious: Yes (Death, Other)
  Sender: FDA-Public Use
  Company Number: JP-ASTRAZENECA-2014SE21701

PATIENT
  Age: 76 Year
  Sex: Male
  Weight: 38 kg

DRUGS (7)
  1. MIYA-BM [Concomitant]
     Active Substance: CLOSTRIDIUM BUTYRICUM SPORES STRAIN M-55
     Indication: ENTEROCOLITIS
     Route: 048
     Dates: start: 20140118, end: 20140502
  2. ELCITONIN [Concomitant]
     Active Substance: ELCATONIN
     Route: 065
     Dates: start: 20140421, end: 20140430
  3. SYMBICORT [Suspect]
     Active Substance: BUDESONIDE\FORMOTEROL FUMARATE DIHYDRATE
     Indication: CHRONIC OBSTRUCTIVE PULMONARY DISEASE
     Dosage: 160/4.5 MICROGRAM TWO DOSES TWICE A DAY
     Route: 055
     Dates: start: 20140117, end: 20140502
  4. SOLITA-T [Concomitant]
     Indication: DECREASED APPETITE
     Route: 065
     Dates: start: 20140415, end: 20140502
  5. DECADRON [Concomitant]
     Active Substance: DEXAMETHASONE
     Indication: DECREASED APPETITE
     Route: 048
     Dates: start: 20140422, end: 20140502
  6. SEEBRI [Concomitant]
     Active Substance: GLYCOPYRRONIUM
     Indication: CHRONIC OBSTRUCTIVE PULMONARY DISEASE
     Route: 055
     Dates: start: 20140117, end: 20140502
  7. CALONAL [Concomitant]
     Active Substance: ACETAMINOPHEN
     Indication: PAIN
     Route: 048
     Dates: end: 20140502

REACTIONS (1)
  - Oral neoplasm [Fatal]

NARRATIVE: CASE EVENT DATE: 201306
